FAERS Safety Report 7072002-0 (Version None)
Quarter: 2010Q4

REPORT INFORMATION
  Report Type: 
  Country: None (occurrence: None)
  Receive Date: 20101029
  Receipt Date: 20091118
  Transmission Date: 20110411
  Serious: No
  Sender: FDA-Public Use
  Company Number: A0817742A

PATIENT
  Age: 71 Year
  Sex: Female

DRUGS (6)
  1. ADVAIR DISKUS 100/50 [Suspect]
     Indication: CHRONIC OBSTRUCTIVE PULMONARY DISEASE
     Dosage: 1PUFF TWICE PER DAY
     Route: 055
  2. HIGH BLOOD PRESSURE PILL [Concomitant]
  3. WATER PILL [Concomitant]
  4. ANTI-CHOLESTEROL MEDICATION [Concomitant]
  5. VITAMIN TAB [Concomitant]
  6. FISH OIL [Concomitant]

REACTIONS (2)
  - DRUG INEFFECTIVE [None]
  - SECRETION DISCHARGE [None]
